FAERS Safety Report 8964401 (Version 1)
Quarter: 2012Q4

REPORT INFORMATION
  Report Type: 
  Country: US (occurrence: US)
  Receive Date: 20121214
  Receipt Date: 20121214
  Transmission Date: 20130627
  Serious: No
  Sender: FDA-Public Use
  Company Number: US-GLAXOSMITHKLINE-A0981699A

PATIENT
  Sex: Female

DRUGS (2)
  1. AVODART [Suspect]
     Indication: ALOPECIA SCARRING
     Route: 048
  2. CYCLOSPORIN [Concomitant]

REACTIONS (3)
  - Madarosis [Recovering/Resolving]
  - Off label use [Unknown]
  - Therapeutic response unexpected [Unknown]
